FAERS Safety Report 9116545 (Version 2)
Quarter: 2013Q1

REPORT INFORMATION
  Report Type: Spontaneous
  Country: PH (occurrence: PH)
  Receive Date: 20130225
  Receipt Date: 20130304
  Transmission Date: 20140127
  Serious: Yes (Death)
  Sender: FDA-Public Use
  Company Number: PH-009507513-1302PHL010711

PATIENT
  Age: 62 Year
  Sex: Male

DRUGS (1)
  1. JANUMET [Suspect]
     Dosage: 1 DF, QD
     Route: 048

REACTIONS (2)
  - Myocardial infarction [Fatal]
  - Inappropriate schedule of drug administration [Unknown]
